FAERS Safety Report 25055056 (Version 1)
Quarter: 2025Q1

REPORT INFORMATION
  Report Type: Report from Study
  Country: US (occurrence: US)
  Receive Date: 20250308
  Receipt Date: 20250308
  Transmission Date: 20250409
  Serious: Yes (Hospitalization, Other)
  Sender: ABBVIE
  Company Number: US-ABBVIE-6165782

PATIENT
  Sex: Male

DRUGS (1)
  1. VENCLEXTA [Suspect]
     Active Substance: VENETOCLAX
     Indication: Chronic myelomonocytic leukaemia
     Route: 048
     Dates: start: 202306

REACTIONS (4)
  - Pulmonary thrombosis [Unknown]
  - Diverticulitis [Unknown]
  - Fall [Unknown]
  - Skin abrasion [Unknown]
